FAERS Safety Report 9322439 (Version 5)
Quarter: 2014Q2

REPORT INFORMATION
  Report Type: Spontaneous
  Country: US (occurrence: US)
  Receive Date: 20130531
  Receipt Date: 20140521
  Transmission Date: 20141212
  Serious: Yes (Hospitalization, Disabling)
  Sender: FDA-Public Use
  Company Number: US-009507513-1305USA013189

PATIENT
  Sex: Female

DRUGS (2)
  1. DEXCHLORPHENIRAMINE MALEATE (+) PSEUDOEPHEDRINE SULFATE (+) GUAIFENESIN [Suspect]
     Dosage: (TABLETS)
     Route: 048
     Dates: start: 1992
  2. PROVENTIL [Suspect]
     Indication: ASTHMA
     Dosage: TABLETS
     Route: 048
     Dates: start: 1992, end: 1992

REACTIONS (22)
  - Panic disorder [Unknown]
  - Asthma [Unknown]
  - Dyspnoea [Unknown]
  - Insomnia [Unknown]
  - Nervous system disorder [Recovered/Resolved]
  - Drug ineffective [Unknown]
  - Cough [Unknown]
  - Road traffic accident [Recovered/Resolved]
  - Depression [Recovered/Resolved]
  - Occupational physical problem [Recovered/Resolved]
  - Mental disorder [Recovered/Resolved]
  - Anger [Unknown]
  - Fear of disease [Unknown]
  - Stress [Unknown]
  - Drug hypersensitivity [Unknown]
  - Drug dispensing error [Unknown]
  - Wrong drug administered [Unknown]
  - Fear of death [Unknown]
  - Wheezing [Unknown]
  - Tremor [Unknown]
  - Mental disorder [Unknown]
  - Abdominal pain upper [Not Recovered/Not Resolved]
